FAERS Safety Report 5606684-4 (Version None)
Quarter: 2008Q1

REPORT INFORMATION
  Report Type: 
  Country: None (occurrence: None)
  Receive Date: 20080129
  Receipt Date: 20070817
  Transmission Date: 20080703
  Serious: Yes (Other)
  Sender: FDA-Public Use
  Company Number: A0666387A

PATIENT
  Age: 52 Year
  Sex: Female
  Weight: 76.4 kg

DRUGS (2)
  1. COMBIVIR [Suspect]
     Indication: HIV INFECTION
     Dosage: 1TAB TWICE PER DAY
     Route: 048
     Dates: start: 20031003, end: 20070511
  2. KALETRA [Suspect]
     Indication: HIV INFECTION
     Dosage: 2CAP TWICE PER DAY
     Route: 048

REACTIONS (4)
  - DEPRESSED MOOD [None]
  - FAT TISSUE INCREASED [None]
  - LIPOATROPHY [None]
  - WEIGHT DECREASED [None]
